FAERS Safety Report 24589549 (Version 2)
Quarter: 2024Q4

REPORT INFORMATION
  Report Type: Spontaneous
  Country: JP (occurrence: JP)
  Receive Date: 20241107
  Receipt Date: 20241115
  Transmission Date: 20250115
  Serious: Yes (Other)
  Sender: EISAI
  Company Number: JP-Eisai-202410008_LEN-EC_P_1

PATIENT
  Sex: Female

DRUGS (12)
  1. LENVATINIB [Suspect]
     Active Substance: LENVATINIB
     Indication: Endometrial cancer
     Dosage: DOSE UNKNOWN
     Route: 048
  2. LENVATINIB [Suspect]
     Active Substance: LENVATINIB
     Dosage: DOSE AND FREQUENCY UNKNOWN
     Route: 048
  3. PEMBROLIZUMAB [Suspect]
     Active Substance: PEMBROLIZUMAB
     Indication: Endometrial cancer
     Dosage: DOSE UNKNOWN
     Route: 041
  4. LEVOTHYROXINE SODIUM [Concomitant]
     Active Substance: LEVOTHYROXINE SODIUM
     Indication: Product used for unknown indication
     Dosage: DOSE UNKNOWN
     Route: 065
  5. AMLODIPINE [Concomitant]
     Active Substance: AMLODIPINE BESYLATE
     Indication: Product used for unknown indication
     Dosage: DOSE UNKNOWN
     Route: 065
  6. ENTRESTO [Concomitant]
     Active Substance: SACUBITRIL\VALSARTAN
     Indication: Product used for unknown indication
     Dosage: DOSE UNKNOWN
     Route: 065
  7. INSULIN NOS [Concomitant]
     Active Substance: INSULIN NOS
     Indication: Product used for unknown indication
     Dosage: DOSE UNKNOWN
     Route: 065
  8. MOSAPRIDE CITRATE DIHYDRATE [Concomitant]
     Active Substance: MOSAPRIDE CITRATE DIHYDRATE
     Indication: Product used for unknown indication
     Dosage: DOSE UNKNOWN
     Route: 065
  9. REBAMIPIDE [Concomitant]
     Active Substance: REBAMIPIDE
     Dosage: DOSE UNKNOWN
     Route: 065
  10. VONOPRAZAN FUMARATE [Concomitant]
     Active Substance: VONOPRAZAN FUMARATE
     Indication: Product used for unknown indication
     Dosage: DOSE UNKNOWN
     Route: 065
  11. AZULENE [Concomitant]
     Active Substance: AZULENE
     Indication: Product used for unknown indication
     Dosage: DOSE UNKNOWN
     Route: 065
  12. GLYCOSAMINOGLYCANS [Concomitant]
     Active Substance: GLYCOSAMINOGLYCANS
     Indication: Product used for unknown indication
     Dosage: DOSE UNKNOWN
     Route: 065

REACTIONS (14)
  - Fulminant type 1 diabetes mellitus [Unknown]
  - Anaemia [Unknown]
  - Platelet count decreased [Unknown]
  - Hypertension [Unknown]
  - Proteinuria [Unknown]
  - Hypothyroidism [Unknown]
  - Malaise [Unknown]
  - Decreased appetite [Unknown]
  - Taste disorder [Unknown]
  - Stomatitis [Unknown]
  - Abdominal pain upper [Unknown]
  - Palmar-plantar erythrodysaesthesia syndrome [Unknown]
  - Paronychia [Unknown]
  - Dysphonia [Unknown]
